FAERS Safety Report 7522580 (Version 2)
Quarter: 2012Q4

REPORT INFORMATION
  Report Type: 
  Country: US (occurrence: US)
  Receive Date: 20100803
  Receipt Date: 20120921
  Transmission Date: 20130627
  Serious: Yes (Death)
  Sender: FDA-Public Use
  Company Number: US-ROCHE-718232

PATIENT
  Sex: Male

DRUGS (10)
  1. AVASTIN [Suspect]
     Indication: LUNG NEOPLASM MALIGNANT
     Route: 065
  2. AVASTIN [Suspect]
     Indication: METASTASES TO LIVER
     Route: 065
  3. AVASTIN [Suspect]
     Route: 065
  4. AVASTIN [Suspect]
     Route: 065
  5. AVASTIN [Suspect]
     Route: 065
  6. AVASTIN [Suspect]
     Route: 065
  7. AVASTIN [Suspect]
     Route: 065
  8. AVASTIN [Suspect]
     Route: 065
  9. AVASTIN [Suspect]
     Route: 065
  10. AVASTIN [Suspect]
     Route: 065

REACTIONS (1)
  - Death [Fatal]
